FAERS Safety Report 9498399 (Version 7)
Quarter: 2015Q1

REPORT INFORMATION
  Report Type: Spontaneous
  Country: CA (occurrence: CA)
  Receive Date: 20130904
  Receipt Date: 20150123
  Transmission Date: 20150721
  Serious: Yes (Other)
  Sender: FDA-Public Use
  Company Number: CA-GLAXOSMITHKLINE-A1021524A

PATIENT
  Age: 47 Year
  Sex: Female
  Weight: 68 kg

DRUGS (14)
  1. PREDNISONE. [Concomitant]
     Active Substance: PREDNISONE
  2. RASILEZ [Concomitant]
     Active Substance: ALISKIREN
  3. LASIX [Concomitant]
     Active Substance: FUROSEMIDE
  4. CALCIUM [Concomitant]
     Active Substance: CALCIUM
  5. IRON [Concomitant]
     Active Substance: IRON
  6. ALFACALCIDOL [Concomitant]
     Active Substance: ALFACALCIDOL
  7. BENLYSTA [Suspect]
     Active Substance: BELIMUMAB
     Dosage: UNK
     Dates: start: 20130422
  8. VITAMIN D [Concomitant]
     Active Substance: CHOLECALCIFEROL
  9. BENLYSTA [Suspect]
     Active Substance: BELIMUMAB
     Indication: SYSTEMIC LUPUS ERYTHEMATOSUS
     Dosage: 740 MG AT WEEK 0,2, +4 THEN EVERY 4 WKS
     Route: 042
     Dates: start: 20130422
  10. ACTONEL [Concomitant]
     Active Substance: RISEDRONATE SODIUM
  11. COUMADIN [Concomitant]
     Active Substance: WARFARIN SODIUM
  12. BENLYSTA [Suspect]
     Active Substance: BELIMUMAB
     Dosage: 680 MG, WEEKS 0, 2, 4 WEEKS THEN Q4 WEEKS
     Route: 042
     Dates: start: 20130422, end: 20150114
  13. PANTOPRAZOLE MAGNESIUM [Concomitant]
     Active Substance: PANTOPRAZOLE MAGNESIUM
  14. ATACAND [Concomitant]
     Active Substance: CANDESARTAN CILEXETIL

REACTIONS (22)
  - Inflammation [Recovered/Resolved]
  - Cough [Unknown]
  - Diverticulitis [Not Recovered/Not Resolved]
  - Pleurisy [Recovering/Resolving]
  - Myalgia [Unknown]
  - Asthenia [Recovering/Resolving]
  - Gait disturbance [Recovering/Resolving]
  - Urticaria [Recovered/Resolved]
  - Headache [Unknown]
  - Skin discolouration [Unknown]
  - Chest discomfort [Not Recovered/Not Resolved]
  - Abdominal pain [Not Recovered/Not Resolved]
  - Rash erythematous [Recovered/Resolved]
  - Abdominal pain upper [Not Recovered/Not Resolved]
  - Arthralgia [Unknown]
  - Rash pruritic [Recovered/Resolved]
  - Weight decreased [Unknown]
  - Pain in extremity [Recovering/Resolving]
  - Rash maculo-papular [Recovered/Resolved]
  - Muscular weakness [Unknown]
  - Fatigue [Unknown]
  - Rash [Recovered/Resolved]

NARRATIVE: CASE EVENT DATE: 20130422
